FAERS Safety Report 4296893-1 (Version None)
Quarter: 2004Q1

REPORT INFORMATION
  Report Type: 
  Country: None (occurrence: None)
  Receive Date: 20040217
  Receipt Date: 20040204
  Transmission Date: 20041129
  Serious: Yes (Hospitalization)
  Sender: FDA-Public Use
  Company Number: US-BRISTOL-MYERS SQUIBB COMPANY-12495461

PATIENT
  Age: 69 Year
  Sex: Female
  Weight: 61 kg

DRUGS (8)
  1. CISPLATIN [Suspect]
     Indication: MESOTHELIOMA
     Route: 050
     Dates: start: 20040106, end: 20040106
  2. PEMETREXED DISODIUM [Suspect]
     Indication: MESOTHELIOMA
     Route: 050
     Dates: start: 20040108, end: 20040108
  3. MULTI-VITAMINS [Concomitant]
     Dates: start: 20030713
  4. MAGNESIUM OXIDE [Concomitant]
     Indication: BLOOD MAGNESIUM DECREASED
     Dates: start: 20041006
  5. MEGACE [Concomitant]
     Indication: ANOREXIA
     Dates: start: 20031231
  6. ZOLOFT [Concomitant]
     Indication: DEPRESSION
     Dates: start: 20031231
  7. GLUCOTROL [Concomitant]
     Indication: DIABETES MELLITUS
     Dates: start: 20030101
  8. GLUCOPHAGE [Concomitant]
     Indication: DIABETES MELLITUS
     Dates: start: 20030101

REACTIONS (5)
  - BLOOD GLUCOSE INCREASED [None]
  - DEHYDRATION [None]
  - NAUSEA [None]
  - PHARYNGOLARYNGEAL PAIN [None]
  - WEIGHT DECREASED [None]
